FAERS Safety Report 13839579 (Version 1)
Quarter: 2017Q3

REPORT INFORMATION
  Report Type: Spontaneous
  Country: US (occurrence: US)
  Receive Date: 20170805
  Receipt Date: 20170805
  Transmission Date: 20171127
  Serious: Yes (Death, Hospitalization)
  Sender: FDA-Public Use
  Company Number: None

PATIENT
  Age: 59 Year
  Sex: Male

DRUGS (13)
  1. RITUXIMAB. [Concomitant]
     Active Substance: RITUXIMAB
  2. RITUXIMAB. [Suspect]
     Active Substance: RITUXIMAB
     Indication: LYMPHOMA
     Route: 042
     Dates: start: 20170201, end: 20170201
  3. ACETAMINAPHEN [Concomitant]
  4. DEXAMETHASONE. [Concomitant]
     Active Substance: DEXAMETHASONE
  5. FAMOTIDINE. [Concomitant]
     Active Substance: FAMOTIDINE
  6. OXYCODONE [Concomitant]
     Active Substance: OXYCODONE
  7. AMPICILLIN [Concomitant]
     Active Substance: AMPICILLIN
  8. DIPHENHYDRAMINE. [Concomitant]
     Active Substance: DIPHENHYDRAMINE
  9. ALLOPURINOL. [Concomitant]
     Active Substance: ALLOPURINOL
  10. AMLODIPINE [Concomitant]
     Active Substance: AMLODIPINE BESYLATE
  11. GABAPENTIN. [Concomitant]
     Active Substance: GABAPENTIN
  12. ATORVASTATIN [Concomitant]
     Active Substance: ATORVASTATIN
  13. ALBUTEROL. [Concomitant]
     Active Substance: ALBUTEROL

REACTIONS (8)
  - Tachycardia [None]
  - Agitation [None]
  - Tachypnoea [None]
  - Chills [None]
  - Stridor [None]
  - Anaphylactic reaction [None]
  - Hypertension [None]
  - Respiratory distress [None]

NARRATIVE: CASE EVENT DATE: 20170201
